FAERS Safety Report 5159058-7 (Version None)
Quarter: 2006Q4

REPORT INFORMATION
  Report Type: 
  Country: None (occurrence: None)
  Receive Date: 20061128
  Receipt Date: 20061122
  Transmission Date: 20070319
  Serious: Yes (Death)
  Sender: FDA-Public Use
  Company Number: FI-ROXANE LABORATORIES, INC-2006-DE-06204GD

PATIENT

DRUGS (2)
  1. SERTRALINE [Suspect]
  2. TRAZODONE HCL [Suspect]

REACTIONS (1)
  - DRUG TOXICITY [None]
